FAERS Safety Report 21077094 (Version 1)
Quarter: 2022Q3

REPORT INFORMATION
  Report Type: Spontaneous
  Country: US (occurrence: None)
  Receive Date: 20220713
  Receipt Date: 20220713
  Transmission Date: 20221026
  Serious: Yes (Hospitalization)
  Sender: FDA-Public Use
  Company Number: None

PATIENT
  Age: 95 Year
  Sex: Male
  Weight: 66.2 kg

DRUGS (7)
  1. PAXLOVID [Suspect]
     Active Substance: NIRMATRELVIR\RITONAVIR
     Indication: COVID-19
     Dosage: FREQUENCY : TWICE A DAY;?
     Route: 048
     Dates: start: 20220706, end: 20220709
  2. BENZONATATE [Concomitant]
     Active Substance: BENZONATATE
     Dates: start: 20220706, end: 20220709
  3. donepezil 10 mg tablet [Concomitant]
  4. duloxetine DR 30 mg capsule [Concomitant]
  5. ENALAPRIL [Concomitant]
     Active Substance: ENALAPRIL
  6. nifedipine ER 90 mg tablet [Concomitant]
  7. SIMVASTATIN [Concomitant]
     Active Substance: SIMVASTATIN

REACTIONS (2)
  - Diarrhoea [None]
  - Acute kidney injury [None]

NARRATIVE: CASE EVENT DATE: 20220709
